FAERS Safety Report 5424610-8 (Version None)
Quarter: 2007Q3

REPORT INFORMATION
  Report Type: 
  Country: None (occurrence: None)
  Receive Date: 20070731
  Receipt Date: 20070529
  Transmission Date: 20080115
  Serious: No
  Sender: FDA-Public Use
  Company Number: US200705007158

PATIENT
  Age: 51 Year
  Sex: Female
  Weight: 122 kg

DRUGS (6)
  1. BYETTA [Suspect]
     Indication: TYPE 2 DIABETES MELLITUS
     Dosage: 10 UG, 2/D,  SUBCUTANEOUS; 5 UG, 2/D, SUBCUTANEOUS
     Route: 058
     Dates: start: 20061201, end: 20070201
  2. BYETTA [Suspect]
     Indication: TYPE 2 DIABETES MELLITUS
     Dosage: 10 UG, 2/D,  SUBCUTANEOUS; 5 UG, 2/D, SUBCUTANEOUS
     Route: 058
     Dates: start: 20070201
  3. EXENATIDE PEN (EXENATIDE PEN) [Concomitant]
  4. GLUCOPHAGE [Concomitant]
  5. HUMULIN R [Concomitant]
  6. AMARYL [Concomitant]

REACTIONS (10)
  - BLOOD GLUCOSE DECREASED [None]
  - DIARRHOEA [None]
  - DIZZINESS [None]
  - FEAR [None]
  - FEELING ABNORMAL [None]
  - GASTROENTERITIS VIRAL [None]
  - MOTOR DYSFUNCTION [None]
  - STOMACH DISCOMFORT [None]
  - VISION BLURRED [None]
  - WEIGHT DECREASED [None]
